FAERS Safety Report 20460059 (Version 3)
Quarter: 2022Q1

REPORT INFORMATION
  Report Type: Spontaneous
  Country: US (occurrence: US)
  Receive Date: 20220211
  Receipt Date: 20220228
  Transmission Date: 20220423
  Serious: Yes (Hospitalization, Other)
  Sender: FDA-Public Use
  Company Number: US-AMGEN-USASP2022020939

PATIENT
  Age: 59 Year
  Sex: Female

DRUGS (13)
  1. AIMOVIG [Suspect]
     Active Substance: ERENUMAB-AOOE
     Indication: Migraine
     Dosage: 140 MILLIGRAM  (EVERY 27 DAYS)
     Route: 065
     Dates: start: 202108, end: 20220122
  2. ESTRADIOL [Concomitant]
     Active Substance: ESTRADIOL
     Dosage: 0.375 (UNIT ABSENT), Q2WK
     Route: 065
  3. CYMBALTA [Concomitant]
     Active Substance: DULOXETINE HYDROCHLORIDE
     Indication: Anxiety
     Dosage: 90 MILLIGRAM, QD
     Route: 065
  4. CYMBALTA [Concomitant]
     Active Substance: DULOXETINE HYDROCHLORIDE
     Indication: Depression
  5. CYMBALTA [Concomitant]
     Active Substance: DULOXETINE HYDROCHLORIDE
     Indication: Supraventricular tachycardia
  6. LEVOTHYROXINE [Concomitant]
     Active Substance: LEVOTHYROXINE
     Dosage: 0.88 (UNITS NOT PROVIDED), QD
     Route: 065
  7. CEFIXIME [Concomitant]
     Active Substance: CEFIXIME
     Dosage: 10 MILLIGRAM  (1-2 AT BEDTIME)
     Route: 065
  8. PROPRANOLOL [Concomitant]
     Active Substance: PROPRANOLOL HYDROCHLORIDE
     Indication: Migraine
     Dosage: 80 MILLIGRAM, QD (BEDTIME)
     Route: 065
  9. PROPRANOLOL [Concomitant]
     Active Substance: PROPRANOLOL HYDROCHLORIDE
     Indication: Supraventricular tachycardia
  10. MAGNESIUM [Concomitant]
     Active Substance: MAGNESIUM
     Indication: Migraine
     Dosage: 400 MILLIGRAM, QD  (MORNING)
     Route: 065
  11. RIBOFLAVIN [Concomitant]
     Active Substance: RIBOFLAVIN
     Indication: Migraine
     Dosage: 400 MILLIGRAM, QD (MORNING)
  12. CALCIUM [Concomitant]
     Active Substance: CALCIUM
     Dosage: 600/800 (UNITS NOT PROVIDED), QD
  13. NURTEC ODT [Concomitant]
     Active Substance: RIMEGEPANT SULFATE
     Indication: Migraine
     Dosage: 2 DOSAGE FORM
     Route: 065

REACTIONS (6)
  - Intestinal calcification [Unknown]
  - Intestinal obstruction [Recovered/Resolved]
  - Constipation [Recovered/Resolved]
  - Ileus [Not Recovered/Not Resolved]
  - Therapeutic response shortened [Unknown]
  - Intentional product misuse [Unknown]

NARRATIVE: CASE EVENT DATE: 20220101
